FAERS Safety Report 8483363-X (Version None)
Quarter: 2012Q3

REPORT INFORMATION
  Report Type: 
  Country: None (occurrence: None)
  Receive Date: 20120702
  Receipt Date: 20120625
  Transmission Date: 20120928
  Serious: Yes (Other)
  Sender: FDA-Public Use
  Company Number: US-BAYER-2012-062245

PATIENT
  Age: 70 Year
  Sex: Female
  Weight: 82 kg

DRUGS (4)
  1. CRESTOR [Concomitant]
  2. RID MOUSSE [Suspect]
     Dosage: 1 U, ONCE
     Route: 061
     Dates: start: 20120620, end: 20120620
  3. BENICAR [Concomitant]
  4. LEVOTHYROXINE SODIUM [Concomitant]

REACTIONS (3)
  - EYE BURNS [None]
  - OCULAR HYPERAEMIA [None]
  - EYE IRRITATION [None]
